FAERS Safety Report 4764407-5 (Version None)
Quarter: 2005Q3

REPORT INFORMATION
  Report Type: 
  Country: None (occurrence: None)
  Receive Date: 20050906
  Receipt Date: 20050826
  Transmission Date: 20060218
  Serious: Yes (Hospitalization)
  Sender: FDA-Public Use
  Company Number: 2005121146

PATIENT
  Age: 55 Year
  Sex: Female
  Weight: 78.9 kg

DRUGS (6)
  1. ALDACTONE [Suspect]
     Indication: HYPERTENSION
     Dosage: 25 MG (25 MG, QD), ORAL
     Route: 048
     Dates: start: 20050418, end: 20050816
  2. ZOLEDRONATE (ZOLEDRONIC ACID) [Suspect]
     Indication: METASTASES TO BONE
     Dosage: 4 MG, INTRAVENOUS
     Route: 042
     Dates: start: 20050811
  3. TAXOTERE [Suspect]
     Indication: ILL-DEFINED DISORDER
     Dates: start: 20050811
  4. CARBOPLATIN [Suspect]
     Indication: ILL-DEFINED DISORDER
     Dates: start: 20050811
  5. VITAMIN D [Concomitant]
  6. CALCIUM (CALCIUM) [Concomitant]

REACTIONS (3)
  - DEHYDRATION [None]
  - HYPOTENSION [None]
  - SYNCOPE [None]
